FAERS Safety Report 6840934-1 (Version None)
Quarter: 2010Q3

REPORT INFORMATION
  Report Type: 
  Country: None (occurrence: None)
  Receive Date: 20100714
  Receipt Date: 20070622
  Transmission Date: 20110219
  Serious: No
  Sender: FDA-Public Use
  Company Number: US-PFIZER INC-2007052864

PATIENT
  Age: 45 Year
  Sex: Male

DRUGS (3)
  1. CHANTIX [Suspect]
     Indication: SMOKING CESSATION THERAPY
     Dates: start: 20070501
  2. ACIPHEX [Concomitant]
  3. VITAMINS [Concomitant]

REACTIONS (3)
  - ABNORMAL DREAMS [None]
  - DYSGEUSIA [None]
  - NAUSEA [None]
